FAERS Safety Report 21023756 (Version 1)
Quarter: 2022Q2

REPORT INFORMATION
  Report Type: Spontaneous
  Country: US (occurrence: US)
  Receive Date: 20220629
  Receipt Date: 20220629
  Transmission Date: 20220721
  Serious: No
  Sender: FDA-Public Use
  Company Number: US-BRISTOL-MYERS SQUIBB COMPANY-2022-064691

PATIENT
  Age: 49 Year
  Sex: Female

DRUGS (2)
  1. OPDIVO [Suspect]
     Active Substance: NIVOLUMAB
     Indication: Plasma cell myeloma
     Dosage: DOSE : OPDIVO194MG,  YERVOY  65MG;     FREQ : EVERY 21
     Route: 042
     Dates: end: 20210430
  2. YERVOY [Suspect]
     Active Substance: IPILIMUMAB
     Indication: Plasma cell myeloma
     Route: 042
     Dates: end: 20210430

REACTIONS (1)
  - Off label use [Unknown]
